FAERS Safety Report 11327751 (Version 1)
Quarter: 2015Q3

REPORT INFORMATION
  Report Type: Spontaneous
  Country: CN (occurrence: CN)
  Receive Date: 20150731
  Receipt Date: 20150731
  Transmission Date: 20151125
  Serious: Yes (Life-Threatening, Hospitalization, Other)
  Sender: FDA-Public Use
  Company Number: PHHY2015CN091789

PATIENT
  Sex: Female
  Weight: 60 kg

DRUGS (1)
  1. ACLASTA [Suspect]
     Active Substance: ZOLEDRONIC ACID
     Indication: PRODUCT USED FOR UNKNOWN INDICATION
     Route: 065

REACTIONS (11)
  - Bacterial toxaemia [Unknown]
  - Productive cough [Not Recovered/Not Resolved]
  - Femoral neck fracture [Unknown]
  - Pyrexia [Not Recovered/Not Resolved]
  - Septic shock [Unknown]
  - Parkinson^s disease [Unknown]
  - Lung infection [Unknown]
  - Cough [Unknown]
  - Systemic inflammatory response syndrome [Unknown]
  - Cerebral infarction [Unknown]
  - Respiratory failure [Unknown]
